FAERS Safety Report 23371567 (Version 2)
Quarter: 2024Q1

REPORT INFORMATION
  Report Type: Spontaneous
  Country: US (occurrence: US)
  Receive Date: 20240105
  Receipt Date: 20240201
  Transmission Date: 20240409
  Serious: Yes (Hospitalization, Other)
  Sender: FDA-Public Use
  Company Number: US-BAXTER-2024BAX009762

PATIENT
  Age: 65 Year
  Sex: Male
  Weight: 61 kg

DRUGS (5)
  1. CYCLOPHOSPHAMIDE [Suspect]
     Active Substance: CYCLOPHOSPHAMIDE
     Indication: Lymphodepletion
     Dosage: 25 MG/KG, QD
     Route: 042
     Dates: start: 20231123, end: 20231124
  2. FLUDARABINE [Suspect]
     Active Substance: FLUDARABINE PHOSPHATE
     Indication: Lymphodepletion
     Dosage: 20 MG/M2/DAY, C1D-6
     Route: 042
     Dates: start: 20231122, end: 20231126
  3. ALDESLEUKIN [Suspect]
     Active Substance: ALDESLEUKIN
     Indication: Colony stimulating factor therapy
     Dosage: 1 X 10^6 IU/M2, QOD
     Route: 058
     Dates: start: 20231128, end: 20231205
  4. ALDESLEUKIN [Suspect]
     Active Substance: ALDESLEUKIN
     Dosage: 1.6 MILLION IU/M2, C1D9
     Route: 058
     Dates: start: 20231206
  5. ALDESLEUKIN [Suspect]
     Active Substance: ALDESLEUKIN
     Dosage: 1.6 MILLION IU/M2, C1D11
     Route: 058
     Dates: start: 20231208, end: 20231208

REACTIONS (17)
  - Cytokine release syndrome [Recovered/Resolved]
  - Arthralgia [Unknown]
  - Fatigue [Unknown]
  - Myalgia [Unknown]
  - Nausea [Unknown]
  - Haemophagocytic lymphohistiocytosis [Not Recovered/Not Resolved]
  - Pneumonia [Not Recovered/Not Resolved]
  - Dyspnoea [Unknown]
  - Tachypnoea [Unknown]
  - Febrile neutropenia [Recovered/Resolved]
  - Pancytopenia [Unknown]
  - Speech disorder [Unknown]
  - Procedural pain [Unknown]
  - Hypotension [Unknown]
  - Vomiting [Unknown]
  - Diarrhoea [Unknown]
  - Influenza like illness [Unknown]

NARRATIVE: CASE EVENT DATE: 20231204
